FAERS Safety Report 23215691 (Version 2)
Quarter: 2023Q4

REPORT INFORMATION
  Report Type: Spontaneous
  Country: PG (occurrence: PG)
  Receive Date: 20231122
  Receipt Date: 20231202
  Transmission Date: 20240110
  Serious: Yes (Death)
  Sender: FDA-Public Use
  Company Number: PG-002147023-NVSC2023PG248153

PATIENT
  Age: 36 Year
  Sex: Female

DRUGS (1)
  1. GLIVEC [Suspect]
     Active Substance: IMATINIB MESYLATE
     Indication: Chronic myeloid leukaemia
     Dosage: 400 MG, (4X100MG)
     Route: 065
     Dates: start: 20190722

REACTIONS (1)
  - Death [Fatal]

NARRATIVE: CASE EVENT DATE: 20230601
